FAERS Safety Report 5133436-4 (Version None)
Quarter: 2006Q4

REPORT INFORMATION
  Report Type: 
  Country: None (occurrence: None)
  Receive Date: 20061024
  Receipt Date: 20060921
  Transmission Date: 20070319
  Serious: Yes (Hospitalization)
  Sender: FDA-Public Use
  Company Number: US-KINGPHARMUSA00001-K200601210

PATIENT
  Age: 59 Year
  Sex: Male
  Weight: 65 kg

DRUGS (7)
  1. SEPTRA [Suspect]
     Indication: ANTIBIOTIC PROPHYLAXIS
     Dosage: 80/400MG, QD
     Route: 048
     Dates: start: 20030602, end: 20060703
  2. BLINDED THERAPY [Suspect]
     Indication: HIV TEST POSITIVE
     Dosage: UNK, BID
     Route: 048
     Dates: start: 20060327, end: 20060703
  3. TRIZIVIR [Concomitant]
     Indication: HIV TEST POSITIVE
     Dosage: 300/150/300 MG, BID
     Route: 048
     Dates: start: 20050310, end: 20060703
  4. DELAVIRDINE [Concomitant]
     Indication: HIV TEST POSITIVE
     Dosage: 400 MG, TID
     Route: 048
     Dates: start: 20060323, end: 20060703
  5. NORVIR [Concomitant]
     Indication: HIV TEST POSITIVE
     Dosage: 100 MG, BID
     Route: 048
     Dates: start: 20060619, end: 20060703
  6. INVIRASE [Concomitant]
     Indication: HIV TEST POSITIVE
     Dosage: 1 G, BID
     Route: 048
     Dates: start: 20060619, end: 20060703
  7. AZITHROMYCIN [Concomitant]
     Dosage: UNK, UNK
     Route: 048
     Dates: start: 20060304, end: 20060703

REACTIONS (10)
  - CHILLS [None]
  - DEHYDRATION [None]
  - DIZZINESS [None]
  - ELECTROCARDIOGRAM QT PROLONGED [None]
  - FALL [None]
  - FATIGUE [None]
  - FEELING ABNORMAL [None]
  - LOSS OF CONSCIOUSNESS [None]
  - ORTHOSTATIC HYPOTENSION [None]
  - SYNCOPE [None]
